FAERS Safety Report 9396223 (Version 1)
Quarter: 2013Q3

REPORT INFORMATION
  Report Type: Spontaneous
  Country: US (occurrence: US)
  Receive Date: 20130711
  Receipt Date: 20130711
  Transmission Date: 20140515
  Serious: Yes (Other)
  Sender: FDA-Public Use
  Company Number: US-PFIZER INC-2013203260

PATIENT
  Age: 70 Year
  Sex: Female
  Weight: 53.06 kg

DRUGS (4)
  1. GABAPENTIN [Suspect]
     Indication: SPINAL DISORDER
     Dosage: 300 MG, 1X/DAY
     Dates: end: 201209
  2. GABAPENTIN [Suspect]
     Indication: HEADACHE
     Dosage: 300 MG, 1X/DAY
     Dates: start: 201301, end: 20130628
  3. LYRICA [Suspect]
     Indication: FIBROMYALGIA
     Dosage: 150 MG, 2X/DAY
     Dates: start: 201209, end: 201212
  4. METFORMIN [Concomitant]
     Indication: TYPE 2 DIABETES MELLITUS
     Dosage: UNK

REACTIONS (4)
  - Off label use [Recovered/Resolved]
  - Bone cyst [Unknown]
  - Arthropathy [Unknown]
  - Drug ineffective for unapproved indication [Unknown]
